FAERS Safety Report 24941928 (Version 1)
Quarter: 2025Q1

REPORT INFORMATION
  Report Type: Spontaneous
  Country: US (occurrence: US)
  Receive Date: 20250207
  Receipt Date: 20250207
  Transmission Date: 20250409
  Serious: Yes (Other)
  Sender: CHEPLAPHARM
  Company Number: US-ROCHE-10000190373

PATIENT
  Age: 70 Year
  Sex: Female

DRUGS (9)
  1. CAPECITABINE [Suspect]
     Active Substance: CAPECITABINE
     Indication: Product used for unknown indication
     Dates: start: 202310
  2. HERCEPTIN [Suspect]
     Active Substance: TRASTUZUMAB
     Indication: Product used for unknown indication
     Dates: start: 20230222, end: 20230608
  3. PERJETA [Suspect]
     Active Substance: PERTUZUMAB
     Indication: Product used for unknown indication
     Dates: end: 20230608
  4. TUKYSA [Suspect]
     Active Substance: TUCATINIB
     Indication: Product used for unknown indication
     Dosage: DAILY DOSE: 600 MILLIGRAM
     Route: 048
  5. PACLITAXEL [Suspect]
     Active Substance: PACLITAXEL
     Indication: Product used for unknown indication
     Dates: start: 20230203
  6. PACLITAXEL [Suspect]
     Active Substance: PACLITAXEL
     Indication: Product used for unknown indication
     Dates: start: 20230210, end: 20230817
  7. AREDIA [Concomitant]
     Active Substance: PAMIDRONATE DISODIUM
     Dates: end: 20230124
  8. ZOMETA [Concomitant]
     Active Substance: ZOLEDRONIC ACID
  9. KEPPRA [Concomitant]
     Active Substance: LEVETIRACETAM

REACTIONS (16)
  - Cardiac failure [Unknown]
  - Metastases to central nervous system [Unknown]
  - Bone cancer [Unknown]
  - Metastases to liver [Unknown]
  - Myelopathy [Unknown]
  - Metastases to bone [Unknown]
  - Osteomyelitis [Unknown]
  - Spinal compression fracture [Unknown]
  - Hypertransaminasaemia [Unknown]
  - Confusional state [Unknown]
  - Ammonia increased [Unknown]
  - Hypoaesthesia [Unknown]
  - Paraesthesia [Unknown]
  - Scalp haematoma [Unknown]
  - Ejection fraction decreased [Unknown]
  - Arteriosclerosis [Unknown]
